FAERS Safety Report 7309242-9 (Version None)
Quarter: 2011Q1

REPORT INFORMATION
  Report Type: 
  Country: None (occurrence: None)
  Receive Date: 20110223
  Receipt Date: 20100409
  Transmission Date: 20110831
  Serious: No
  Sender: FDA-Public Use
  Company Number: US-BAUSCH-2010BL001956

PATIENT
  Age: 49 Year
  Sex: Female
  Weight: 52 kg

DRUGS (1)
  1. NEOMYCIN AND POLYMYXIN B SULFATES AND GRAMICIDIN OPHTH SOL USP [Suspect]
     Indication: CONJUNCTIVITIS INFECTIVE
     Route: 047
     Dates: start: 20100401

REACTIONS (1)
  - DRUG INEFFECTIVE [None]
